FAERS Safety Report 25074514 (Version 1)
Quarter: 2025Q1

REPORT INFORMATION
  Report Type: Report from Study
  Country: AU (occurrence: AU)
  Receive Date: 20250313
  Receipt Date: 20250313
  Transmission Date: 20250408
  Serious: Yes (Death)
  Sender: KARYOPHARM THERAPEUTICS
  Company Number: AU-ANTENGENE-20250303045

PATIENT
  Age: 77 Year
  Sex: Female

DRUGS (1)
  1. SELINEXOR [Suspect]
     Active Substance: SELINEXOR
     Indication: Diffuse large B-cell lymphoma
     Dosage: 60 MG, 2X/WEEK

REACTIONS (1)
  - Diffuse large B-cell lymphoma [Fatal]
